FAERS Safety Report 23578844 (Version 1)
Quarter: 2024Q1

REPORT INFORMATION
  Report Type: Spontaneous
  Country: AU (occurrence: AU)
  Receive Date: 20240229
  Receipt Date: 20240229
  Transmission Date: 20240410
  Serious: Yes (Other)
  Sender: FDA-Public Use
  Company Number: AU-TEVA-VS-3161507

PATIENT
  Age: 36 Year
  Sex: Female

DRUGS (5)
  1. FENTANYL [Suspect]
     Active Substance: FENTANYL\FENTANYL CITRATE
     Route: 065
  2. SYNTOCINON [Suspect]
     Active Substance: OXYTOCIN
     Route: 065
  3. ERGONOVINE MALEATE [Suspect]
     Active Substance: ERGONOVINE MALEATE
     Route: 065
  4. BUPIVACAINE HYDROCHLORIDE [Suspect]
     Active Substance: BUPIVACAINE HYDROCHLORIDE\BUPIVACAINE HYDROCHLORIDE ANHYDROUS
     Route: 065
  5. CEFAZOLIN SODIUM [Suspect]
     Active Substance: CEFAZOLIN SODIUM
     Route: 065

REACTIONS (8)
  - Atrial fibrillation [Unknown]
  - Discomfort [Unknown]
  - Maternal exposure during delivery [Unknown]
  - Feeling hot [Unknown]
  - Head discomfort [Unknown]
  - Normal newborn [Unknown]
  - Tachycardia [Unknown]
  - Nausea [Unknown]
